FAERS Safety Report 5818678-4 (Version None)
Quarter: 2008Q3

REPORT INFORMATION
  Report Type: 
  Country: None (occurrence: None)
  Receive Date: 20080717
  Receipt Date: 20080717
  Transmission Date: 20090109
  Serious: Yes (Life-Threatening, Hospitalization, Other)
  Sender: FDA-Public Use
  Company Number: None

PATIENT
  Sex: Male
  Weight: 122.4712 kg

DRUGS (4)
  1. BYETTA [Suspect]
     Indication: DIABETES MELLITUS
     Dosage: 5MCG BID SQ
     Route: 058
     Dates: start: 20060808, end: 20060912
  2. BYETTA [Suspect]
     Indication: OBESITY
     Dosage: 5MCG BID SQ
     Route: 058
     Dates: start: 20060808, end: 20060912
  3. BYETTA [Suspect]
     Indication: DIABETES MELLITUS
     Dosage: 10 MCG BID SQ
     Route: 058
     Dates: start: 20060913, end: 20080206
  4. BYETTA [Suspect]
     Indication: OBESITY
     Dosage: 10 MCG BID SQ
     Route: 058
     Dates: start: 20060913, end: 20080206

REACTIONS (1)
  - PANCREATIC NEUROENDOCRINE TUMOUR [None]
